FAERS Safety Report 14750994 (Version 2)
Quarter: 2018Q2

REPORT INFORMATION
  Report Type: Spontaneous
  Country: US (occurrence: US)
  Receive Date: 20180412
  Receipt Date: 20180424
  Transmission Date: 20180711
  Serious: No
  Sender: FDA-Public Use
  Company Number: US-PFIZER INC-2018147650

PATIENT
  Age: 56 Year
  Sex: Male

DRUGS (15)
  1. AMITRIPTYLINE [Suspect]
     Active Substance: AMITRIPTYLINE
     Indication: SLEEP DISORDER
     Dosage: UNK
  2. XANAX [Suspect]
     Active Substance: ALPRAZOLAM
     Dosage: UNK
  3. OXYCODONE [Suspect]
     Active Substance: OXYCODONE
     Dosage: UNK
  4. GABAPENTIN. [Suspect]
     Active Substance: GABAPENTIN
     Dosage: UNK
  5. VENLAFAXINE HCL [Suspect]
     Active Substance: VENLAFAXINE HYDROCHLORIDE
     Dosage: UNK
  6. KLONOPIN [Suspect]
     Active Substance: CLONAZEPAM
     Dosage: UNK
  7. AMBIEN [Suspect]
     Active Substance: ZOLPIDEM TARTRATE
     Indication: SLEEP DISORDER
     Dosage: UNK
  8. FELDENE [Suspect]
     Active Substance: PIROXICAM
     Dosage: UNK
  9. PERCOCET [Suspect]
     Active Substance: ACETAMINOPHEN\OXYCODONE HYDROCHLORIDE
     Dosage: UNK
  10. VALIUM [Suspect]
     Active Substance: DIAZEPAM
     Dosage: UNK
  11. HYDROCODONE [Suspect]
     Active Substance: HYDROCODONE
     Dosage: UNK
  12. LAMOTRIGINE. [Suspect]
     Active Substance: LAMOTRIGINE
     Dosage: UNK
  13. NABUMETONE. [Suspect]
     Active Substance: NABUMETONE
     Dosage: UNK
  14. TEGRETOL [Suspect]
     Active Substance: CARBAMAZEPINE
     Dosage: UNK
  15. SOMA [Suspect]
     Active Substance: CARISOPRODOL
     Dosage: UNK

REACTIONS (6)
  - Feeling abnormal [Unknown]
  - Drug ineffective [Unknown]
  - Helplessness [Unknown]
  - Thinking abnormal [Unknown]
  - Anxiety [Unknown]
  - Depressed mood [Unknown]
